FAERS Safety Report 7380936-2 (Version None)
Quarter: 2011Q1

REPORT INFORMATION
  Report Type: 
  Country: None (occurrence: None)
  Receive Date: 20110325
  Receipt Date: 20110325
  Transmission Date: 20110831
  Serious: Yes (Hospitalization)
  Sender: FDA-Public Use
  Company Number: None

PATIENT
  Age: 72 Year
  Sex: Female
  Weight: 122.5 kg

DRUGS (23)
  1. HYDROCODONE BITARTRATE AND ACETAMINOPHEN [Concomitant]
  2. FERROUS SULFATE TAB [Concomitant]
  3. OCULAR LUBRICANT [Concomitant]
  4. VIT B6 [Concomitant]
  5. COUMADIN [Suspect]
     Indication: DEEP VEIN THROMBOSIS
     Dosage: PO  CHRONIC
     Route: 048
  6. SPIRIVA [Concomitant]
  7. ADVAIR HFA [Concomitant]
  8. VIT B12 [Concomitant]
  9. ALLEGRA [Concomitant]
  10. FLONASE [Concomitant]
  11. CITALOPRAM [Concomitant]
  12. OMEPRAZOLE [Concomitant]
  13. TRAMADOL HCL [Concomitant]
  14. FOLIC ACID [Concomitant]
  15. VIT D [Concomitant]
  16. SYNTHROID [Concomitant]
  17. SOTALOL [Concomitant]
  18. BONIVA [Concomitant]
  19. FUROSEMIDE [Concomitant]
  20. METHOTREXATE [Concomitant]
  21. POTASSIUM CHLORIDE [Concomitant]
  22. ALBUTEROL [Concomitant]
  23. CALCIUM CARBONATE [Concomitant]

REACTIONS (8)
  - HAEMATEMESIS [None]
  - HAEMORRHOIDS [None]
  - FALL [None]
  - INTERNATIONAL NORMALISED RATIO INCREASED [None]
  - PAIN [None]
  - DIVERTICULUM [None]
  - HAEMOGLOBIN DECREASED [None]
  - HIATUS HERNIA [None]
